FAERS Safety Report 11291922 (Version 1)
Quarter: 2015Q3

REPORT INFORMATION
  Report Type: Spontaneous
  Country: US (occurrence: None)
  Receive Date: 20150721
  Receipt Date: 20150721
  Transmission Date: 20151125
  Serious: No
  Sender: FDA-Public Use
  Company Number: None

PATIENT
  Age: 39 Year
  Sex: Male

DRUGS (1)
  1. NEXAVAR [Suspect]
     Active Substance: SORAFENIB
     Indication: NEOPLASM SKIN
     Route: 048
     Dates: start: 20150307, end: 201506

REACTIONS (1)
  - No therapeutic response [None]

NARRATIVE: CASE EVENT DATE: 201506
